FAERS Safety Report 5515839-9 (Version None)
Quarter: 2007Q4

REPORT INFORMATION
  Report Type: 
  Country: None (occurrence: None)
  Receive Date: 20071109
  Receipt Date: 20071030
  Transmission Date: 20080405
  Serious: Yes (Death, Other)
  Sender: FDA-Public Use
  Company Number: 2007JP004947

PATIENT
  Age: 79 Year
  Sex: Male
  Weight: 44.2 kg

DRUGS (8)
  1. TACROLIMUS           CAPSULES [Suspect]
     Indication: RHEUMATOID ARTHRITIS
     Dosage: 1.5 MG, D, ORAL
     Route: 048
     Dates: start: 20061031, end: 20070201
  2. MOBIC [Concomitant]
  3. PREDNISONE [Concomitant]
  4. ALFAROL            (ALFACALCIDOL) [Concomitant]
  5. FOSAMAC                (ALENDRONATE SODIUM) [Concomitant]
  6. URSO 250 [Concomitant]
  7. FERROMIA              (FERROUS CITRATE) [Concomitant]
  8. ISONIAZID [Concomitant]

REACTIONS (2)
  - CARDIAC ARREST [None]
  - PNEUMONIA [None]
